FAERS Safety Report 20875247 (Version 1)
Quarter: 2022Q2

REPORT INFORMATION
  Report Type: Spontaneous
  Country: GB (occurrence: GB)
  Receive Date: 20220526
  Receipt Date: 20220526
  Transmission Date: 20220720
  Serious: Yes (Other)
  Sender: FDA-Public Use
  Company Number: GB-MHRA-MED-202204201049146720-XCOW3

PATIENT
  Age: 65 Year
  Sex: Female

DRUGS (1)
  1. ARIPIPRAZOLE [Suspect]
     Active Substance: ARIPIPRAZOLE
     Indication: Product used for unknown indication
     Dosage: 400 MILLIGRAM (DEPOT ONCE A MONTH)
     Route: 065
     Dates: start: 202007

REACTIONS (2)
  - Vitreous floaters [Not Recovered/Not Resolved]
  - Medication error [Unknown]

NARRATIVE: CASE EVENT DATE: 20211101
